FAERS Safety Report 10088975 (Version 4)
Quarter: 2014Q2

REPORT INFORMATION
  Report Type: Report from Study
  Country: US (occurrence: US)
  Receive Date: 20140421
  Receipt Date: 20140623
  Transmission Date: 20141212
  Serious: Yes (Death, Hospitalization)
  Sender: FDA-Public Use
  Company Number: US-JNJFOC-20110306553

PATIENT
  Age: 61 Year
  Sex: Female
  Weight: 79.38 kg

DRUGS (10)
  1. USTEKINUMAB [Suspect]
     Indication: PSORIASIS
     Route: 058
     Dates: start: 20120103, end: 20131119
  2. USTEKINUMAB [Suspect]
     Indication: PSORIASIS
     Route: 058
     Dates: start: 20100110, end: 20110712
  3. ACITRETIN [Concomitant]
     Indication: PSORIASIS
     Route: 065
  4. ALEVE [Concomitant]
     Indication: PSORIASIS
     Route: 065
  5. SYSTEMIC CORTICOSTEROIDS [Concomitant]
     Indication: PSORIASIS
     Route: 065
  6. FLONASE [Concomitant]
     Indication: MULTIPLE ALLERGIES
     Route: 065
  7. ZYRTEC [Concomitant]
     Indication: MULTIPLE ALLERGIES
     Route: 065
  8. OMEPRAZOLE [Concomitant]
     Indication: GASTROOESOPHAGEAL REFLUX DISEASE
     Route: 065
  9. MUCINEX [Concomitant]
     Indication: SINUS DISORDER
     Route: 065
  10. NIACIN [Concomitant]
     Indication: BLOOD CHOLESTEROL INCREASED
     Route: 065

REACTIONS (4)
  - Small cell lung cancer [Fatal]
  - Chronic obstructive pulmonary disease [Recovered/Resolved]
  - Costochondritis [Recovering/Resolving]
  - Hypothyroidism [Recovering/Resolving]
